FAERS Safety Report 7808458-2 (Version None)
Quarter: 2011Q4

REPORT INFORMATION
  Report Type: 
  Country: None (occurrence: None)
  Receive Date: 20111012
  Receipt Date: 20110930
  Transmission Date: 20120403
  Serious: Yes (Hospitalization)
  Sender: FDA-Public Use
  Company Number: US-BAYER-200933612NA

PATIENT
  Age: 42 Year
  Sex: Female
  Weight: 61 kg

DRUGS (8)
  1. YAZ [Suspect]
     Indication: MENSTRUAL DISORDER
     Dosage: UNK
     Route: 048
     Dates: start: 20060601, end: 20070101
  2. LISINOPRIL [Concomitant]
  3. TINDAMAX [Concomitant]
  4. LOESTRIN 1.5/30 [Concomitant]
     Dates: start: 20070601
  5. PREVACID [Concomitant]
     Indication: GASTROOESOPHAGEAL REFLUX DISEASE
     Dates: start: 20080701
  6. SINGULAIR [Concomitant]
     Dates: start: 20080701
  7. NAPROXEN [Concomitant]
  8. POLYETHYLENE GLYCOL [Concomitant]
     Indication: CONSTIPATION

REACTIONS (3)
  - CHOLECYSTITIS [None]
  - GALLBLADDER INJURY [None]
  - CHOLECYSTECTOMY [None]
